FAERS Safety Report 6963952-1 (Version None)
Quarter: 2010Q3

REPORT INFORMATION
  Report Type: 
  Country: None (occurrence: None)
  Receive Date: 20100902
  Receipt Date: 20100902
  Transmission Date: 20110219
  Serious: Yes (Other)
  Sender: FDA-Public Use
  Company Number: None

PATIENT
  Sex: Female
  Weight: 41.7309 kg

DRUGS (2)
  1. FOSAMAX [Suspect]
     Indication: OSTEOPOROSIS
     Dosage: ONCE WKLY
     Dates: start: 20010101, end: 20080101
  2. ALENDRONATE SODIUM [Suspect]
     Indication: OSTEOPOROSIS
     Dosage: 70 MG ONCE WKLY
     Dates: start: 20080101, end: 20100101

REACTIONS (3)
  - BONE DISORDER [None]
  - IMPAIRED HEALING [None]
  - OSTEONECROSIS OF JAW [None]
